FAERS Safety Report 4736256-5 (Version None)
Quarter: 2005Q3

REPORT INFORMATION
  Report Type: 
  Country: None (occurrence: None)
  Receive Date: 20050805
  Receipt Date: 20050805
  Transmission Date: 20060218
  Serious: Yes (Death)
  Sender: FDA-Public Use
  Company Number: None

PATIENT
  Age: 71 Year
  Sex: Male
  Weight: 81 kg

DRUGS (16)
  1. CARMUSTINE [Suspect]
     Dosage: 570MG QDX1 IV
     Route: 042
     Dates: start: 20050609
  2. ETOPOSIDE [Suspect]
     Dosage: 380 MG QDX4 IV
     Route: 042
     Dates: start: 20050609, end: 20050612
  3. CYTARABINE [Suspect]
     Dosage: 570 MG QDX1 IV
     Route: 042
     Dates: start: 20050609, end: 20050612
  4. MELPHALAN [Suspect]
     Dosage: 380 MG QDX4 IV
     Route: 042
     Dates: start: 20050613
  5. ACYCLOVIR [Concomitant]
  6. DOXYCYCLINE [Concomitant]
  7. DIGOXIN [Concomitant]
  8. LOVENOX [Concomitant]
  9. PROTONIX [Concomitant]
  10. DILTIAZEM [Concomitant]
  11. METOPROLOL [Concomitant]
  12. LASIX [Concomitant]
  13. DAPSONE [Concomitant]
  14. K-DUR 10 [Concomitant]
  15. FOLIC ACID [Concomitant]
  16. MULTI-VITAMIN [Concomitant]

REACTIONS (13)
  - ASTHENIA [None]
  - ATRIAL FIBRILLATION [None]
  - BLOOD ELECTROLYTES ABNORMAL [None]
  - CARDIAC FAILURE [None]
  - CLOSTRIDIUM COLITIS [None]
  - CULTURE THROAT POSITIVE [None]
  - CYTOMEGALOVIRUS INFECTION [None]
  - MULTI-ORGAN FAILURE [None]
  - PNEUMONIA [None]
  - RESPIRATORY DISORDER [None]
  - SMALL INTESTINAL OBSTRUCTION [None]
  - STAPHYLOCOCCAL INFECTION [None]
  - STOMATITIS [None]
